FAERS Safety Report 7465659-3 (Version None)
Quarter: 2011Q2

REPORT INFORMATION
  Report Type: 
  Country: None (occurrence: None)
  Receive Date: 20110509
  Receipt Date: 20110504
  Transmission Date: 20111010
  Serious: Yes (Disabling, Other)
  Sender: FDA-Public Use
  Company Number: A0925789A

PATIENT
  Age: 89 Year
  Sex: Male

DRUGS (4)
  1. PROPAFENONE HCL [Suspect]
     Indication: ATRIAL FIBRILLATION
     Dosage: 150MG PER DAY
     Route: 048
     Dates: end: 20110401
  2. CEPHALOSPORIN [Concomitant]
  3. TRIMETHOPRIM [Concomitant]
  4. PROTOPIC [Concomitant]

REACTIONS (1)
  - PULMONARY FIBROSIS [None]
